FAERS Safety Report 8947449 (Version 1)
Quarter: 2012Q4

REPORT INFORMATION
  Report Type: 
  Country: DK (occurrence: NZ)
  Receive Date: 20121205
  Receipt Date: 20121205
  Transmission Date: 20130627
  Serious: Yes (Hospitalization)
  Sender: FDA-Public Use
  Company Number: NZ-FRI-1000040816

PATIENT
  Age: 94 Year
  Sex: Female

DRUGS (11)
  1. ESCITALOPRAM [Suspect]
     Dosage: 5 mg
  2. ESCITALOPRAM [Interacting]
     Dosage: 10 mg
  3. OMEPRAZOLE [Interacting]
     Dosage: 20 mg
  4. TIOTROPIUM [Concomitant]
  5. METOPROLOL [Concomitant]
  6. ISOSORBIDE MONONITRATE [Concomitant]
  7. HYDROXOCOBALAMIN [Concomitant]
  8. SALBUTAMOL [Concomitant]
  9. ASPIRIN [Concomitant]
  10. ZOLEDRONIC ACID [Concomitant]
  11. CEFACLOR [Concomitant]

REACTIONS (2)
  - Hyponatraemia [Unknown]
  - Drug interaction [Unknown]
